FAERS Safety Report 8053216-X (Version None)
Quarter: 2011Q4

REPORT INFORMATION
  Report Type: 
  Country: None (occurrence: None)
  Receive Date: 20111213
  Receipt Date: 20110727
  Transmission Date: 20120403
  Serious: Yes (Hospitalization)
  Sender: FDA-Public Use
  Company Number: 2011SP035331

PATIENT
  Age: 43 Year
  Sex: Female

DRUGS (3)
  1. LEXAPRO [Concomitant]
  2. SAPHRIS [Suspect]
     Indication: DEPRESSION
     Dosage: 10 MG;QD;PO 5 MG; QD; PO 2.5 MG; QD; PO 1.25 MG; QD PO
     Route: 048
     Dates: start: 20110101, end: 20110717
  3. LAMICTAL [Concomitant]

REACTIONS (11)
  - SOMNOLENCE [None]
  - UNDERDOSE [None]
  - RESTLESSNESS [None]
  - FEELING ABNORMAL [None]
  - INAPPROPRIATE SCHEDULE OF DRUG ADMINISTRATION [None]
  - ANXIETY [None]
  - INCORRECT ROUTE OF DRUG ADMINISTRATION [None]
  - WRONG TECHNIQUE IN DRUG USAGE PROCESS [None]
  - ADVERSE EVENT [None]
  - VOMITING [None]
  - AKATHISIA [None]
